FAERS Safety Report 10038208 (Version 1)
Quarter: 2014Q1

REPORT INFORMATION
  Report Type: Spontaneous
  Country: US (occurrence: None)
  Receive Date: 20140306
  Receipt Date: 20140306
  Transmission Date: 20141002
  Serious: Yes (Hospitalization)
  Sender: FDA-Public Use
  Company Number: 163-21880-13043838

PATIENT
  Age: 76 Year
  Sex: Male

DRUGS (1)
  1. REVLIMID [Suspect]
     Indication: PLASMA CELL MYELOMA
     Route: 048
     Dates: start: 20130323, end: 20130329

REACTIONS (7)
  - Plasma cell myeloma recurrent [None]
  - Thrombocytopenia [None]
  - Haemoglobin decreased [None]
  - Haematocrit decreased [None]
  - Platelet count decreased [None]
  - Blood urea increased [None]
  - Blood creatinine increased [None]
